FAERS Safety Report 6475797-X (Version None)
Quarter: 2009Q4

REPORT INFORMATION
  Report Type: 
  Country: None (occurrence: None)
  Receive Date: 20091204
  Receipt Date: 20091123
  Transmission Date: 20100525
  Serious: No
  Sender: FDA-Public Use
  Company Number: GB-ELI_LILLY_AND_COMPANY-GB200903004991

PATIENT
  Sex: Female

DRUGS (7)
  1. OLANZAPINE [Suspect]
     Indication: MANIA
     Dosage: 10 MG / QOD
     Dates: start: 20090310, end: 20090310
  2. OLANZAPINE [Suspect]
     Dosage: 7.5 MG, UNK
     Dates: start: 20090311, end: 20090311
  3. OLANZAPINE [Suspect]
     Dosage: 10 MG, UNK
     Dates: start: 20090312, end: 20090101
  4. OLANZAPINE [Suspect]
     Dosage: 20 MG, UNK
     Dates: start: 20090101, end: 20091106
  5. OLANZAPINE [Suspect]
     Dates: start: 20091108
  6. HALOPERIDOL [Concomitant]
     Indication: MANIA
     Dosage: 5.15 MG, UNK
     Route: 048
     Dates: start: 20090704, end: 20091027
  7. LORAZEPAM [Concomitant]
     Indication: AGITATION
     Dosage: 1 MG, 4/D
     Route: 048
     Dates: start: 20090310, end: 20090314

REACTIONS (5)
  - CERVIX DISORDER [None]
  - DRUG EXPOSURE DURING PREGNANCY [None]
  - INDUCED LABOUR [None]
  - POSTPARTUM HAEMORRHAGE [None]
  - PROLONGED LABOUR [None]
